FAERS Safety Report 5009929-7 (Version None)
Quarter: 2006Q2

REPORT INFORMATION
  Report Type: 
  Country: None (occurrence: None)
  Receive Date: 20060522
  Receipt Date: 20060507
  Transmission Date: 20061013
  Serious: Yes (Other)
  Sender: FDA-Public Use
  Company Number: 2006BH009370

PATIENT
  Sex: Female

DRUGS (2)
  1. MORPHINE SULFATE [Suspect]
     Indication: SPINAL ANAESTHESIA
     Dosage: 100 UG; ONCE; ISPIN
  2. BUPIVACAINE [Suspect]
     Indication: SPINAL ANAESTHESIA
     Dosage: 10 MG; ONCE; ISPIN

REACTIONS (2)
  - ANAESTHETIC COMPLICATION [None]
  - HYPOTHERMIA [None]
